FAERS Safety Report 9308957 (Version 2)
Quarter: 2013Q2

REPORT INFORMATION
  Report Type: Spontaneous
  Country: US (occurrence: US)
  Receive Date: 20130524
  Receipt Date: 20130626
  Transmission Date: 20140414
  Serious: Yes (Hospitalization)
  Sender: FDA-Public Use
  Company Number: PHHY2013US051474

PATIENT
  Age: 61 Year
  Sex: Female

DRUGS (6)
  1. CEFEPIME [Suspect]
     Indication: ARTHRITIS BACTERIAL
  2. LEVOFLOXACIN [Suspect]
     Indication: ARTHRITIS BACTERIAL
  3. METOPROLOL [Suspect]
  4. TACROLIMUS [Concomitant]
  5. COUMADINE [Concomitant]
  6. DOCUSATE SODIUM [Concomitant]

REACTIONS (7)
  - Eczema [Unknown]
  - Erythema [Unknown]
  - Skin exfoliation [Unknown]
  - Pruritus [Unknown]
  - Dermatitis [Unknown]
  - Macule [Unknown]
  - Rash [Recovered/Resolved]
